FAERS Safety Report 7473403-9 (Version None)
Quarter: 2011Q2

REPORT INFORMATION
  Report Type: 
  Country: None (occurrence: None)
  Receive Date: 20110511
  Receipt Date: 20110505
  Transmission Date: 20111010
  Serious: Yes (Death, Hospitalization, Other)
  Sender: FDA-Public Use
  Company Number: PHHY2009FR67708

PATIENT
  Sex: Male

DRUGS (2)
  1. ZOMETA [Suspect]
     Indication: METASTASES TO BONE
     Dosage: 4 MG, UNK
     Route: 042
     Dates: start: 20091002
  2. TAXOTERE [Concomitant]
     Indication: CHEMOTHERAPY
     Dosage: 130 MG, QMO
     Dates: start: 20091015

REACTIONS (10)
  - ANAEMIA [None]
  - PYREXIA [None]
  - DISEASE PROGRESSION [None]
  - HYPOCALCAEMIA [None]
  - NEOPLASM MALIGNANT [None]
  - STAPHYLOCOCCAL SEPSIS [None]
  - THROMBOCYTOPENIA [None]
  - DEVICE RELATED INFECTION [None]
  - STAPHYLOCOCCAL INFECTION [None]
  - RENAL FAILURE [None]
